FAERS Safety Report 8926631 (Version 1)
Quarter: 2012Q4

REPORT INFORMATION
  Report Type: 
  Country: US (occurrence: US)
  Receive Date: 20121127
  Receipt Date: 20121127
  Transmission Date: 20130627
  Serious: Yes (Disabling)
  Sender: FDA-Public Use
  Company Number: US-PFIZER INC-2012294936

PATIENT
  Age: 57 Year
  Sex: Female
  Weight: 62.59 kg

DRUGS (5)
  1. XANAX [Suspect]
     Indication: ANXIETY
     Dosage: 1 mg, as needed
     Route: 048
  2. LYRICA [Suspect]
     Indication: FIBROMYALGIA
     Dosage: 150 mg, 3x/day
     Route: 048
     Dates: end: 2012
  3. CITALOPRAM [Concomitant]
     Dosage: UNK
  4. CLONAZEPAM [Concomitant]
     Dosage: UNK
  5. NUCYNTA ER [Concomitant]
     Dosage: UNK

REACTIONS (4)
  - Intervertebral disc disorder [Unknown]
  - Fibromyalgia [Unknown]
  - Back disorder [Unknown]
  - Bone disorder [Unknown]
